FAERS Safety Report 6924260-8 (Version None)
Quarter: 2010Q3

REPORT INFORMATION
  Report Type: 
  Country: None (occurrence: None)
  Receive Date: 20100811
  Receipt Date: 20100811
  Transmission Date: 20110219
  Serious: No
  Sender: FDA-Public Use
  Company Number: None

PATIENT
  Sex: Male
  Weight: 43 kg

DRUGS (3)
  1. MERCAPTOPURINE [Suspect]
     Dosage: 1500 MG
     Dates: end: 20100805
  2. METHOTREXATE [Suspect]
     Dosage: 65 MG
     Dates: end: 20100722
  3. VINCRISTINE SULFATE [Suspect]
     Dosage: 1.9 MG
     Dates: end: 20100722

REACTIONS (3)
  - BLOOD BILIRUBIN UNCONJUGATED INCREASED [None]
  - HYPERBILIRUBINAEMIA [None]
  - HYPERGLYCAEMIA [None]
